FAERS Safety Report 13768228 (Version 2)
Quarter: 2017Q4

REPORT INFORMATION
  Report Type: Spontaneous
  Country: US (occurrence: US)
  Receive Date: 20170719
  Receipt Date: 20171114
  Transmission Date: 20180320
  Serious: No
  Sender: FDA-Public Use
  Company Number: US-SHIRE-US201714733

PATIENT
  Age: 50 Year
  Sex: Female

DRUGS (1)
  1. XIIDRA [Suspect]
     Active Substance: LIFITEGRAST
     Indication: DRY EYE
     Dosage: UNK UNK, 2X/DAY:BID
     Route: 047
     Dates: start: 20170705

REACTIONS (5)
  - Product use complaint [Unknown]
  - Instillation site hypoaesthesia [Recovered/Resolved]
  - Instillation site lacrimation [Recovered/Resolved]
  - Feeling abnormal [Unknown]
  - Instillation site pain [Unknown]

NARRATIVE: CASE EVENT DATE: 20170705
